FAERS Safety Report 16764016 (Version 1)
Quarter: 2019Q3

REPORT INFORMATION
  Report Type: Spontaneous
  Country: US (occurrence: US)
  Receive Date: 20190712
  Receipt Date: 20190712
  Transmission Date: 20191005
  Serious: No
  Sender: FDA-Public Use
  Company Number: None

PATIENT
  Age: 85 Year
  Sex: Male

DRUGS (3)
  1. LUPRON DEPOT [Concomitant]
     Active Substance: LEUPROLIDE ACETATE
  2. FINASTERIDE. [Concomitant]
     Active Substance: FINASTERIDE
  3. ABIRATERONE 250MG TAB [Suspect]
     Active Substance: ABIRATERONE
     Dates: start: 201907

REACTIONS (2)
  - Prostatic specific antigen increased [None]
  - Prostate cancer [None]

NARRATIVE: CASE EVENT DATE: 20190712
